FAERS Safety Report 4917256-9 (Version None)
Quarter: 2006Q1

REPORT INFORMATION
  Report Type: 
  Country: None (occurrence: None)
  Receive Date: 20060221
  Receipt Date: 20050114
  Transmission Date: 20060701
  Serious: Yes (Hospitalization, Disabling, Other)
  Sender: FDA-Public Use
  Company Number: US-MERCK-0501USA03338

PATIENT
  Age: 43 Year
  Sex: Male
  Weight: 80 kg

DRUGS (2)
  1. VIOXX [Suspect]
     Indication: RHEUMATOID ARTHRITIS
     Route: 048
     Dates: start: 20020701, end: 20040901
  2. VIOXX [Suspect]
     Indication: MUSCLE DISORDER
     Route: 048
     Dates: start: 20020701, end: 20040901

REACTIONS (15)
  - ABDOMINAL PAIN [None]
  - ANGINA UNSTABLE [None]
  - ANXIETY [None]
  - CARDIAC DISORDER [None]
  - CHEST PAIN [None]
  - CONDITION AGGRAVATED [None]
  - CORONARY ARTERY DISEASE [None]
  - DEPRESSION [None]
  - DYSPNOEA [None]
  - HEADACHE [None]
  - HEART INJURY [None]
  - HYPERTENSION [None]
  - MYOCARDIAL INFARCTION [None]
  - MYOCARDIAL ISCHAEMIA [None]
  - PANIC ATTACK [None]
